FAERS Safety Report 25569104 (Version 1)
Quarter: 2025Q3

REPORT INFORMATION
  Report Type: Spontaneous
  Country: US (occurrence: US)
  Receive Date: 20250716
  Receipt Date: 20250716
  Transmission Date: 20251020
  Serious: No
  Sender: Alora Pharma
  Company Number: US-SUNNY-2024ALO00588

PATIENT
  Age: 21 Year
  Sex: Female
  Weight: 45.359 kg

DRUGS (1)
  1. NITROFURANTOIN [Suspect]
     Active Substance: NITROFURANTOIN
     Indication: Urinary tract infection
     Dosage: 100 MG, 2X/DAY
     Route: 048
     Dates: start: 20241217, end: 20241217

REACTIONS (2)
  - Abdominal distension [Unknown]
  - Coeliac disease [Unknown]

NARRATIVE: CASE EVENT DATE: 20241217
